FAERS Safety Report 20680448 (Version 1)
Quarter: 2022Q2

REPORT INFORMATION
  Report Type: Spontaneous
  Country: CN (occurrence: CN)
  Receive Date: 20220406
  Receipt Date: 20220406
  Transmission Date: 20220720
  Serious: Yes (Other)
  Sender: FDA-Public Use
  Company Number: CN-BAXTER-2022BAX007160

PATIENT
  Age: 20 Year
  Sex: Male
  Weight: 57.1 kg

DRUGS (14)
  1. CYCLOPHOSPHAMIDE [Suspect]
     Active Substance: CYCLOPHOSPHAMIDE
     Indication: Acute lymphocytic leukaemia
     Dosage: CYCLOPHOSPHAMIDE FOR INJECTION WITH 0.9% SODIUM CHLORIDE 500 ML
     Route: 041
     Dates: start: 20220302, end: 20220302
  2. CYCLOPHOSPHAMIDE [Suspect]
     Active Substance: CYCLOPHOSPHAMIDE
     Dosage: CYCLOPHOSPHAMIDE FOR INJECTION WITH 0.9% SODIUM CHLORIDE, DOSE RE-INTRODUCED
     Route: 041
  3. SODIUM CHLORIDE [Suspect]
     Active Substance: SODIUM CHLORIDE
     Indication: Medication dilution
     Dosage: VINCRISTINE SULFATE FOR INJECTION 2 MG + SODIUM CHLORIDE INJECTION 180 ML IVGTT Q7D
     Route: 041
     Dates: start: 20220302, end: 20220318
  4. SODIUM CHLORIDE [Suspect]
     Active Substance: SODIUM CHLORIDE
     Dosage: 0.9% NS INJECTION 250 ML + DAUNORUBICIN HYDROCHLORIDE FOR INJECTION 40 MG IV DRIP ONCE/7 DAYS
     Route: 041
     Dates: start: 20220302, end: 20220318
  5. SODIUM CHLORIDE [Suspect]
     Active Substance: SODIUM CHLORIDE
     Dosage: 0.9% SODIUM CHLORIDE INJECTION 500 ML + CYCLOPHOSPHAMIDE FOR INJECTION 1000 MG IVGTT ONCE.
     Route: 041
     Dates: start: 20220302, end: 20220302
  6. SODIUM CHLORIDE [Suspect]
     Active Substance: SODIUM CHLORIDE
     Dosage: VINCRISTINE SULFATE FOR INJECTION + SODIUM CHLORIDE INJECTION  IVGTT Q7D, DOSE REINTRODUCED
     Route: 041
  7. SODIUM CHLORIDE [Suspect]
     Active Substance: SODIUM CHLORIDE
     Dosage: 0.9% NS INJECTION+ DAUNORUBICIN HYDROCHLORIDE FOR INJECTION IV GTT ONCE/7 DAYS, DOSE REINTRODUCED
     Route: 041
  8. SODIUM CHLORIDE [Suspect]
     Active Substance: SODIUM CHLORIDE
     Dosage: 0.9% SODIUM CHLORIDE INJECTION+ CYCLOPHOSPHAMIDE FOR INJECTION IVGTT ONCE, DOSE REINTRODUCED
     Route: 041
  9. DAUNORUBICIN HYDROCHLORIDE [Suspect]
     Active Substance: DAUNORUBICIN HYDROCHLORIDE
     Indication: Acute lymphocytic leukaemia
     Dosage: 0.9% NS INJECTION 250 ML + DAUNORUBICIN HYDROCHLORIDE INJECTION 40 MG INTRAVENOUS DRIP ONCE/7 DAYS
     Route: 041
     Dates: start: 20220302, end: 20220318
  10. DAUNORUBICIN HYDROCHLORIDE [Suspect]
     Active Substance: DAUNORUBICIN HYDROCHLORIDE
     Dosage: DOSE REINTRODUCED, 0.9% NS INJECTION + DAUNORUBICIN HYDROCHLORIDE INJECTION IV GTT
     Route: 041
  11. PEGASPARGASE [Suspect]
     Active Substance: PEGASPARGASE
     Indication: Acute lymphocytic leukaemia
     Route: 030
     Dates: start: 20220302, end: 20220302
  12. PEGASPARGASE [Suspect]
     Active Substance: PEGASPARGASE
     Dosage: DOSE REINTRODUCED
     Route: 030
  13. VINCRISTINE SULFATE [Suspect]
     Active Substance: VINCRISTINE SULFATE
     Indication: Acute lymphocytic leukaemia
     Dosage: VINCRISTINE SULFATE FOR INJECTION 2 MG + SODIUM CHLORIDE INJECTION 180 MG IVGTT Q7D
     Route: 042
     Dates: start: 20220302, end: 20220318
  14. VINCRISTINE SULFATE [Suspect]
     Active Substance: VINCRISTINE SULFATE
     Dosage: VINCRISTINE SULFATE FOR INJECTION+ SODIUM CHLORIDE INJECTION IVGTT Q7D, DOSE REINTRODUCED
     Route: 042

REACTIONS (1)
  - Myelosuppression [Unknown]

NARRATIVE: CASE EVENT DATE: 20220318
